FAERS Safety Report 21901857 (Version 4)
Quarter: 2025Q2

REPORT INFORMATION
  Report Type: Report from Study
  Country: US (occurrence: US)
  Receive Date: 20230124
  Receipt Date: 20250507
  Transmission Date: 20250717
  Serious: Yes (Death)
  Sender: ROCHE
  Company Number: US-ROCHE-3269279

PATIENT
  Age: 70 Year
  Sex: Male

DRUGS (8)
  1. ESBRIET [Suspect]
     Active Substance: PIRFENIDONE
     Indication: Idiopathic pulmonary fibrosis
     Dosage: TAKE 3 TABLET(S) BY MOUTH 3 TIMES A DAY
     Route: 048
  2. ESBRIET [Suspect]
     Active Substance: PIRFENIDONE
     Indication: Pulmonary fibrosis
  3. FLOMAX [Concomitant]
     Active Substance: TAMSULOSIN HYDROCHLORIDE
  4. LIPITOR [Concomitant]
     Active Substance: ATORVASTATIN CALCIUM
  5. LANTUS [Concomitant]
     Active Substance: INSULIN GLARGINE
  6. PLAVIX [Concomitant]
     Active Substance: CLOPIDOGREL BISULFATE
  7. ASPIRIN [Concomitant]
     Active Substance: ASPIRIN
  8. RANEXA [Concomitant]
     Active Substance: RANOLAZINE

REACTIONS (1)
  - Death [Fatal]

NARRATIVE: CASE EVENT DATE: 20230112
